FAERS Safety Report 4700831-4 (Version None)
Quarter: 2005Q2

REPORT INFORMATION
  Report Type: 
  Country: None (occurrence: None)
  Receive Date: 20050209
  Receipt Date: 20050209
  Transmission Date: 20051028
  Serious: Yes (Other)
  Sender: FDA-Public Use
  Company Number: None

PATIENT
  Sex: Male
  Weight: 72.5755 kg

DRUGS (7)
  1. OXYCONTIN [Suspect]
     Indication: PANCREATITIS CHRONIC
     Dosage: 80MG PO Q12 HOURS
     Route: 048
  2. NEURONTIN [Concomitant]
  3. LANTUS [Concomitant]
  4. MONOPRIL [Concomitant]
  5. METOPROLOL [Concomitant]
  6. PANCREASE [Concomitant]
  7. TRAZODONE HCL [Concomitant]

REACTIONS (2)
  - DIARRHOEA [None]
  - STOMACH DISCOMFORT [None]
